FAERS Safety Report 4895889-6 (Version None)
Quarter: 2006Q1

REPORT INFORMATION
  Report Type: 
  Country: None (occurrence: None)
  Receive Date: 20060125
  Receipt Date: 20060112
  Transmission Date: 20060701
  Serious: Yes (Hospitalization)
  Sender: FDA-Public Use
  Company Number: 2006008411

PATIENT
  Age: 24 Year
  Sex: Female
  Weight: 60 kg

DRUGS (4)
  1. HYDROCORTISONE SODIUM SUCCINATE [Suspect]
     Indication: PROPHYLAXIS
     Dosage: 200 MG (100 MG, TOTAL),
  2. POLARAMINE [Suspect]
     Indication: PROPHYLAXIS
     Dosage: 1 DOSE FORM (TOTAL), INTRAVENOUS
     Route: 042
  3. REMICADE [Suspect]
     Indication: ENTERITIS
     Dosage: 300 MG (, TOTAL), INTRAVENOUS
     Route: 042
  4. IMURAN [Concomitant]

REACTIONS (7)
  - ATRIOVENTRICULAR BLOCK COMPLETE [None]
  - ATRIOVENTRICULAR EXTRASYSTOLES [None]
  - BLOOD CALCIUM INCREASED [None]
  - BLOOD GLUCOSE INCREASED [None]
  - LOSS OF CONSCIOUSNESS [None]
  - MALAISE [None]
  - SINUS BRADYCARDIA [None]
